FAERS Safety Report 18627442 (Version 1)
Quarter: 2020Q4

REPORT INFORMATION
  Report Type: Spontaneous
  Country: IL (occurrence: IL)
  Receive Date: 20201217
  Receipt Date: 20201217
  Transmission Date: 20210114
  Serious: Yes (Other)
  Sender: FDA-Public Use
  Company Number: IL-ROCHE-2731172

PATIENT
  Age: 64 Year
  Sex: Female

DRUGS (3)
  1. TAXOL [Suspect]
     Active Substance: PACLITAXEL
     Indication: HER2 POSITIVE BREAST CANCER
     Route: 065
     Dates: end: 201606
  2. TAMOXIFEN [Concomitant]
     Active Substance: TAMOXIFEN
  3. HERCEPTIN [Suspect]
     Active Substance: TRASTUZUMAB
     Indication: HER2 POSITIVE BREAST CANCER
     Route: 065
     Dates: end: 201702

REACTIONS (9)
  - Hypoaesthesia [Unknown]
  - Onychoclasis [Unknown]
  - Tinnitus [Unknown]
  - Productive cough [Unknown]
  - Alopecia [Unknown]
  - Diarrhoea [Unknown]
  - Hypoacusis [Unknown]
  - Bronchitis [Unknown]
  - Pyrexia [Recovered/Resolved]
